FAERS Safety Report 18108298 (Version 1)
Quarter: 2020Q3

REPORT INFORMATION
  Report Type: Spontaneous
  Country: US (occurrence: US)
  Receive Date: 20200803
  Receipt Date: 20200803
  Transmission Date: 20201103
  Serious: No
  Sender: FDA-Public Use
  Company Number: None

PATIENT
  Age: 42 Year
  Sex: Female

DRUGS (1)
  1. PREDNISONE TAB 20MG [Suspect]
     Active Substance: PREDNISONE
     Route: 048
     Dates: start: 202007

REACTIONS (4)
  - Flatulence [None]
  - Flushing [None]
  - Swelling [None]
  - Abdominal distension [None]

NARRATIVE: CASE EVENT DATE: 20200803
